FAERS Safety Report 5591691-0 (Version None)
Quarter: 2008Q1

REPORT INFORMATION
  Report Type: 
  Country: None (occurrence: None)
  Receive Date: 20080115
  Receipt Date: 20080111
  Transmission Date: 20080703
  Serious: Yes (Hospitalization, Other)
  Sender: FDA-Public Use
  Company Number: GB-TEVA-166217ISR

PATIENT
  Age: 44 Year
  Sex: Female

DRUGS (2)
  1. DIAZEPAM [Suspect]
     Indication: AGITATION
  2. HALOPERIDOL [Suspect]
     Indication: HOSTILITY

REACTIONS (3)
  - HYPERPROLACTINAEMIA [None]
  - SOMATIC DELUSION [None]
  - WEIGHT INCREASED [None]
